FAERS Safety Report 8248237-8 (Version None)
Quarter: 2012Q1

REPORT INFORMATION
  Report Type: 
  Country: None (occurrence: None)
  Receive Date: 20120330
  Receipt Date: 20120326
  Transmission Date: 20120608
  Serious: No
  Sender: FDA-Public Use
  Company Number: US-BAYER-2012-030778

PATIENT
  Age: 78 Year
  Sex: Male
  Weight: 82 kg

DRUGS (4)
  1. AMLODIPINE W/BENAZEPRIL HYDROCHLORIDE [Concomitant]
  2. PLAVIX [Concomitant]
  3. CALAN [VINPOCETINE] [Concomitant]
  4. ALEVE (CAPLET) [Suspect]
     Indication: BACK PAIN
     Dosage: 1 DF, QD
     Route: 048
     Dates: start: 20120312, end: 20120324

REACTIONS (1)
  - BACK PAIN [None]
